FAERS Safety Report 23503776 (Version 1)
Quarter: 2024Q1

REPORT INFORMATION
  Report Type: Spontaneous
  Country: RU (occurrence: RU)
  Receive Date: 20240209
  Receipt Date: 20240209
  Transmission Date: 20240409
  Serious: Yes (Life-Threatening, Hospitalization)
  Sender: FDA-Public Use
  Company Number: RU-ABBVIE-5621064

PATIENT
  Age: 9 Year
  Weight: 39 kg

DRUGS (8)
  1. SEVOFLURANE [Suspect]
     Active Substance: SEVOFLURANE
     Indication: General anaesthesia
     Dosage: 2.5 VOL%, GAS FLOW 3.0 L/MIN
     Route: 055
     Dates: start: 20230916, end: 20230916
  2. SEVOFLURANE [Suspect]
     Active Substance: SEVOFLURANE
     Indication: General anaesthesia
     Dosage: DOSE FORM: INHALATION GAS
     Route: 055
  3. TRACRIUM [Suspect]
     Active Substance: ATRACURIUM BESYLATE
     Indication: Endotracheal intubation
     Route: 065
     Dates: start: 20230916, end: 20230916
  4. PROPOFOL [Suspect]
     Active Substance: PROPOFOL
     Indication: General anaesthesia
     Dosage: 1% - 100 MG
     Route: 065
     Dates: start: 20230916, end: 20230916
  5. ETHAMSYLATE [Concomitant]
     Active Substance: ETHAMSYLATE
     Indication: Adjuvant therapy
     Dosage: 12.5% SOLUTION - 250 MG
     Route: 065
     Dates: start: 20230916, end: 20230916
  6. SODIUM CHLORIDE [Concomitant]
     Active Substance: SODIUM CHLORIDE
     Indication: Adjuvant therapy
     Dosage: 0.9% - 200 MILLILITERS
     Route: 065
     Dates: start: 20230916, end: 20230916
  7. CEFTRIAXONE [Suspect]
     Active Substance: CEFTRIAXONE\CEFTRIAXONE SODIUM
     Indication: Antibiotic prophylaxis
     Route: 065
     Dates: start: 20230916, end: 20230916
  8. FENTANYL [Suspect]
     Active Substance: FENTANYL\FENTANYL CITRATE
     Indication: Induction of anaesthesia
     Dosage: 0.005% - 0.1 MG
     Route: 065
     Dates: start: 20230916, end: 20230916

REACTIONS (1)
  - Anaphylactic shock [Unknown]

NARRATIVE: CASE EVENT DATE: 20230916
